FAERS Safety Report 6331533-9 (Version None)
Quarter: 2009Q3

REPORT INFORMATION
  Report Type: 
  Country: None (occurrence: None)
  Receive Date: 20090827
  Receipt Date: 20090731
  Transmission Date: 20100115
  Serious: No
  Sender: FDA-Public Use
  Company Number: US-BAYER-200913031BCC

PATIENT
  Age: 73 Year
  Sex: Male
  Weight: 50 kg

DRUGS (6)
  1. ALEVE (CAPLET) [Suspect]
     Indication: BACK PAIN
     Dosage: TOTAL DAILY DOSE: 220 MG  UNIT DOSE: 220 MG
     Route: 048
     Dates: start: 20090731, end: 20090731
  2. ALEVE (CAPLET) [Suspect]
     Dosage: TOTAL DAILY DOSE: 220 MG  UNIT DOSE: 220 MG
     Route: 048
     Dates: start: 20090729, end: 20090729
  3. TYLENOL (CAPLET) [Concomitant]
     Dosage: HAS BEEN TAKING EVERY DAY
     Dates: start: 20060101, end: 20090101
  4. TYLENOL (CAPLET) [Concomitant]
     Dates: start: 20090730, end: 20090730
  5. NEURONTIN [Concomitant]
  6. COZAAR [Concomitant]

REACTIONS (2)
  - FEELING ABNORMAL [None]
  - NAUSEA [None]
